FAERS Safety Report 8409687-X (Version None)
Quarter: 2012Q2

REPORT INFORMATION
  Report Type: 
  Country: None (occurrence: None)
  Receive Date: 20120529
  Receipt Date: 20120515
  Transmission Date: 20120825
  Serious: Yes (Death)
  Sender: FDA-Public Use
  Company Number: ACO_30396_2012

PATIENT
  Age: 70 Year
  Sex: Male

DRUGS (14)
  1. OXYCODONE HCL [Concomitant]
  2. AMPYRA [Suspect]
     Indication: MULTIPLE SCLEROSIS
     Dosage: 10 MG, Q 12 HRS, ORAL
     Route: 048
     Dates: start: 20110816, end: 20120510
  3. VITAMIN B-12 [Concomitant]
  4. AVODART [Concomitant]
  5. LASIX [Concomitant]
  6. SPIRIVA [Concomitant]
  7. ALL OTHER THERAPEUTIC PRODUCTS [Concomitant]
  8. COQ10 (UBIDECARENONE) [Concomitant]
  9. FISH OIL [Concomitant]
  10. MOBIC [Concomitant]
  11. ADVAIR HFA [Concomitant]
  12. LOPRESSOR [Concomitant]
  13. RESTORIL (CHLORMEZANONE) [Concomitant]
  14. BACLOFEN [Concomitant]

REACTIONS (1)
  - RESPIRATORY FAILURE [None]
